FAERS Safety Report 17193169 (Version 1)
Quarter: 2019Q4

REPORT INFORMATION
  Report Type: Spontaneous
  Country: DE (occurrence: DE)
  Receive Date: 20191223
  Receipt Date: 20191223
  Transmission Date: 20200122
  Serious: Yes (Hospitalization)
  Sender: FDA-Public Use
  Company Number: NVSC2019DE071067

PATIENT
  Age: 72 Year
  Sex: Female

DRUGS (3)
  1. ARAVA [Suspect]
     Active Substance: LEFLUNOMIDE
     Indication: PRODUCT USED FOR UNKNOWN INDICATION
     Dosage: 10 MG, QD
     Route: 065
  2. ARAVA [Suspect]
     Active Substance: LEFLUNOMIDE
     Dosage: 20 MG, BIW
     Route: 065
  3. METHOTREXATE. [Suspect]
     Active Substance: METHOTREXATE
     Indication: RHEUMATOID ARTHRITIS
     Route: 065

REACTIONS (8)
  - Bowel movement irregularity [Unknown]
  - Alopecia [Recovering/Resolving]
  - Decreased appetite [Unknown]
  - Hypertension [Recovering/Resolving]
  - Weight decreased [Unknown]
  - Drug intolerance [Unknown]
  - Diarrhoea [Unknown]
  - Herpes virus infection [Unknown]
